FAERS Safety Report 18677639 (Version 1)
Quarter: 2020Q4

REPORT INFORMATION
  Report Type: Report from Study
  Country: EG (occurrence: EG)
  Receive Date: 20201229
  Receipt Date: 20201229
  Transmission Date: 20210114
  Serious: Yes (Other)
  Sender: FDA-Public Use
  Company Number: NVSC2020EG344318

PATIENT
  Age: 13 Year
  Sex: Male
  Weight: 35 kg

DRUGS (1)
  1. OMNITROPE [Suspect]
     Active Substance: SOMATROPIN
     Indication: GROWTH HORMONE DEFICIENCY
     Dosage: 3.5 IU
     Route: 058
     Dates: start: 20201217

REACTIONS (6)
  - Mood altered [Recovering/Resolving]
  - Overdose [Recovered/Resolved]
  - Lethargy [Recovering/Resolving]
  - Mood swings [Recovering/Resolving]
  - Somnolence [Recovering/Resolving]
  - Product dose omission issue [Not Recovered/Not Resolved]

NARRATIVE: CASE EVENT DATE: 20201217
